FAERS Safety Report 4784826-0 (Version None)
Quarter: 2005Q3

REPORT INFORMATION
  Report Type: 
  Country: None (occurrence: None)
  Receive Date: 20050929
  Receipt Date: 20050929
  Transmission Date: 20060218
  Serious: Yes (Other)
  Sender: FDA-Public Use
  Company Number: None

PATIENT
  Sex: Female
  Weight: 17.6903 kg

DRUGS (3)
  1. AMOXICILLIN [Suspect]
     Indication: DIABETES MELLITUS
     Dosage: 2 1/4 TSP BID PO
     Route: 048
     Dates: start: 20050911, end: 20050913
  2. BENADRYL [Concomitant]
  3. CEFZIL [Concomitant]

REACTIONS (1)
  - RASH [None]
